FAERS Safety Report 8271025-3 (Version None)
Quarter: 2012Q1

REPORT INFORMATION
  Report Type: 
  Country: None (occurrence: None)
  Receive Date: 20120327
  Receipt Date: 20090825
  Transmission Date: 20120608
  Serious: Yes (Other)
  Sender: FDA-Public Use
  Company Number: PHEH2009US09358

PATIENT
  Age: 49 Year
  Sex: Female
  Weight: 74.8 kg

DRUGS (11)
  1. NORCO [Concomitant]
  2. OXYCONTIN [Concomitant]
  3. ACETAMINOPHEN [Concomitant]
  4. FISH OIL (FISH OIL) [Concomitant]
  5. GLEEVEC [Suspect]
     Indication: MALIGNANT SOFT TISSUE NEOPLASM
     Dosage: 400 MG, QD, ORAL,  400 MG, BID, ORAL
     Route: 048
     Dates: start: 20090601
  6. GLEEVEC [Suspect]
     Indication: MALIGNANT SOFT TISSUE NEOPLASM
     Dosage: 400 MG, QD, ORAL,  400 MG, BID, ORAL
     Route: 048
     Dates: start: 20071001
  7. TRICOR [Concomitant]
  8. PROTONIX [Concomitant]
  9. LIPITOR [Concomitant]
  10. PREVACID [Concomitant]
  11. GEMFIBROZIL [Concomitant]

REACTIONS (6)
  - BLOOD CALCIUM INCREASED [None]
  - EYE SWELLING [None]
  - NEOPLASM MALIGNANT [None]
  - NAUSEA [None]
  - BLOOD ALKALINE PHOSPHATASE INCREASED [None]
  - ALANINE AMINOTRANSFERASE INCREASED [None]
